FAERS Safety Report 25033737 (Version 1)
Quarter: 2025Q1

REPORT INFORMATION
  Report Type: Spontaneous
  Country: JP (occurrence: JP)
  Receive Date: 20250303
  Receipt Date: 20250303
  Transmission Date: 20250408
  Serious: Yes (Other)
  Sender: TAKEDA
  Company Number: JP-TAKEDA-2025TJP002314

PATIENT
  Age: 10 Year
  Sex: Male

DRUGS (2)
  1. INTUNIV [Suspect]
     Active Substance: GUANFACINE HYDROCHLORIDE
     Indication: Product used for unknown indication
  2. INTUNIV [Suspect]
     Active Substance: GUANFACINE HYDROCHLORIDE

REACTIONS (3)
  - Oxygen saturation decreased [Unknown]
  - Blood pressure decreased [Unknown]
  - Bradycardia [Unknown]

NARRATIVE: CASE EVENT DATE: 20250201
